FAERS Safety Report 15406400 (Version 1)
Quarter: 2018Q3

REPORT INFORMATION
  Report Type: Report from Study
  Country: KR (occurrence: KR)
  Receive Date: 20180920
  Receipt Date: 20180920
  Transmission Date: 20181010
  Serious: Yes (Hospitalization)
  Sender: FDA-Public Use
  Company Number: KR-ROCHE-2091231

PATIENT
  Age: 57 Year
  Sex: Female
  Weight: 49.2 kg

DRUGS (8)
  1. TRASTUZUMAB EMTANSINE [Suspect]
     Active Substance: ADO-TRASTUZUMAB EMTANSINE
     Indication: BREAST CANCER METASTATIC
     Dosage: ROUTE AS PER PROTOCOL?SUBSEQUENT DOSES WERE RECEIVED ON 22/NOV/2017, 13/DEC/2017, 03/JAN/2018, 24/JA
     Route: 042
     Dates: start: 20171101
  2. ZOMEBON [Concomitant]
     Indication: METASTASES TO BONE
     Route: 042
     Dates: start: 20171122
  3. DICAMAX [Concomitant]
     Indication: OSTEOPOROSIS PROPHYLAXIS
     Dosage: 1 TABLET
     Route: 048
     Dates: start: 20161207
  4. PENIRAMIN [Concomitant]
     Route: 042
     Dates: start: 20180628, end: 20180628
  5. DEXAMETHASONE. [Concomitant]
     Active Substance: DEXAMETHASONE
     Indication: PREMEDICATION
     Route: 042
     Dates: start: 20171101
  6. MACPERAN [Concomitant]
     Active Substance: METOCLOPRAMIDE HYDROCHLORIDE
     Indication: PROPHYLAXIS OF NAUSEA AND VOMITING
     Route: 048
     Dates: start: 20171101
  7. CYMBALTA [Concomitant]
     Active Substance: DULOXETINE HYDROCHLORIDE
     Route: 048
     Dates: start: 20180509
  8. PLAKON [Concomitant]
     Indication: PREMEDICATION
     Route: 042
     Dates: start: 20171101

REACTIONS (4)
  - Cellulitis [Recovered/Resolved]
  - Pruritus [Recovered/Resolved]
  - Pain in extremity [Recovering/Resolving]
  - Postmastectomy lymphoedema syndrome [Recovered/Resolved]

NARRATIVE: CASE EVENT DATE: 20171122
